FAERS Safety Report 9298498 (Version 1)
Quarter: 2013Q2

REPORT INFORMATION
  Report Type: Report from Study
  Country: DE (occurrence: DE)
  Receive Date: 20130520
  Receipt Date: 20130520
  Transmission Date: 20140414
  Serious: Yes (Hospitalization)
  Sender: FDA-Public Use
  Company Number: DE-GILEAD-2013-0075396

PATIENT
  Age: 74 Year
  Sex: Female

DRUGS (12)
  1. RANOLAZINE [Suspect]
     Indication: ANGINA PECTORIS
     Dosage: 750 MG, BID
     Dates: start: 20121120, end: 20121213
  2. RANOLAZINE [Suspect]
     Dosage: 375 MG, BID
     Dates: start: 20121029, end: 20121110
  3. RANOLAZINE [Suspect]
     Dosage: 500 MG, BID
     Dates: start: 20121111, end: 20121119
  4. METOPROLOL SUCCINATE [Concomitant]
     Indication: PRODUCT USED FOR UNKNOWN INDICATION
     Dosage: 90 MG, QD
     Dates: start: 2006
  5. AMLODIPINE [Concomitant]
     Indication: PRODUCT USED FOR UNKNOWN INDICATION
     Dosage: 5 MG, UNK
     Dates: start: 1999
  6. AMLODIPINE [Concomitant]
     Dosage: 500 MG, BID
     Route: 048
     Dates: start: 20121111, end: 20121119
  7. AMLODIPINE [Concomitant]
     Dosage: 750 MG, BID
     Route: 048
     Dates: start: 20121120, end: 20121213
  8. VALSARTAN [Concomitant]
     Indication: PRODUCT USED FOR UNKNOWN INDICATION
     Dosage: 320 MG, QD
     Dates: start: 201004
  9. ASS [Concomitant]
     Indication: PRODUCT USED FOR UNKNOWN INDICATION
     Dosage: 100 MG, QD
     Dates: start: 2006
  10. CLOPIDOGREL [Concomitant]
     Indication: PRODUCT USED FOR UNKNOWN INDICATION
     Dosage: 75 MG, QD
     Dates: start: 201004
  11. HCT [Concomitant]
     Indication: PRODUCT USED FOR UNKNOWN INDICATION
     Dosage: 25 MG, QD
     Dates: start: 201005
  12. INSULIN [Concomitant]
     Indication: TYPE 2 DIABETES MELLITUS
     Dosage: 80 IU, QD
     Dates: start: 1980

REACTIONS (2)
  - Coronary artery bypass [Recovered/Resolved with Sequelae]
  - Myocardial infarction [Recovered/Resolved with Sequelae]
